FAERS Safety Report 4833728-X (Version None)
Quarter: 2005Q4

REPORT INFORMATION
  Report Type: 
  Country: None (occurrence: None)
  Receive Date: 20051121
  Receipt Date: 20051111
  Transmission Date: 20060501
  Serious: Yes (Life-Threatening, Hospitalization)
  Sender: FDA-Public Use
  Company Number: MX-ABBOTT-05P-107-0317283-00

PATIENT
  Sex: Male
  Weight: 71 kg

DRUGS (4)
  1. KALETRA [Suspect]
     Indication: DRUG USE FOR UNKNOWN INDICATION
  2. FLUCONAZOLE [Concomitant]
     Indication: PROPHYLAXIS
     Route: 048
  3. BACTRIM [Concomitant]
     Indication: PROPHYLAXIS
     Route: 048
  4. CLARITHROMYCIN [Concomitant]
     Indication: PROPHYLAXIS
     Route: 048

REACTIONS (3)
  - ECCHYMOSIS [None]
  - FACE OEDEMA [None]
  - THROMBOCYTOPENIA [None]
